FAERS Safety Report 10227554 (Version 2)
Quarter: 2014Q4

REPORT INFORMATION
  Report Type: Spontaneous
  Country: BR (occurrence: BR)
  Receive Date: 20140610
  Receipt Date: 20141111
  Transmission Date: 20150528
  Serious: Yes (Death, Hospitalization)
  Sender: FDA-Public Use
  Company Number: PHHY2014BR069839

PATIENT
  Age: 71 Year
  Sex: Female

DRUGS (4)
  1. ZOLEDRONATE [Suspect]
     Active Substance: ZOLEDRONIC ACID
     Indication: CHEMOTHERAPY
     Route: 065
  2. PACLITAXEL. [Suspect]
     Active Substance: PACLITAXEL
     Indication: CHEMOTHERAPY
     Dosage: 80 MG/M2, QW (WEEKLY ON DAYS 1, 8, 15 EVERY 28 DAYS)
     Route: 042
  3. DOXORUBICIN [Suspect]
     Active Substance: DOXORUBICIN
     Indication: CHEMOTHERAPY
     Dosage: 35 MG/M2, EVERY 3 WEEKS
     Route: 042
  4. GEMCITABINE [Suspect]
     Active Substance: GEMCITABINE\GEMCITABINE HYDROCHLORIDE
     Indication: CHEMOTHERAPY
     Dosage: 1000 MG/M2, UNK
     Route: 042

REACTIONS (8)
  - Neuropathy peripheral [Unknown]
  - Bone lesion [Unknown]
  - Bone pain [Unknown]
  - Pulmonary mass [Unknown]
  - Drug ineffective [Unknown]
  - Death [Fatal]
  - Angiosarcoma [Unknown]
  - Metastases to liver [Unknown]
